FAERS Safety Report 10149875 (Version 1)
Quarter: 2014Q2

REPORT INFORMATION
  Report Type: Report from Study
  Country: US (occurrence: US)
  Receive Date: 20140502
  Receipt Date: 20140502
  Transmission Date: 20141212
  Serious: Yes (Death, Hospitalization)
  Sender: FDA-Public Use
  Company Number: US-BIOGENIDEC-2014BI041020

PATIENT
  Age: 60 Year
  Sex: Male

DRUGS (8)
  1. TECFIDERA [Suspect]
     Indication: MULTIPLE SCLEROSIS
     Route: 048
     Dates: start: 20130401, end: 201402
  2. AMPYRA [Concomitant]
     Dates: start: 20100126, end: 20140208
  3. BACLOFEN [Concomitant]
     Dates: end: 20140216
  4. LISINOPRIL [Concomitant]
     Dates: end: 20140216
  5. ROSUVASTATIN [Concomitant]
     Dates: end: 20140216
  6. TRIAMTERENE [Concomitant]
     Dates: end: 20140216
  7. HYDROCLOROTHIAZIDE [Concomitant]
     Dates: end: 20140216
  8. METFORMIN [Concomitant]
     Dates: end: 20140216

REACTIONS (4)
  - Intestinal ischaemia [Fatal]
  - Renal failure acute [Fatal]
  - Gastroenteritis viral [Unknown]
  - Hyponatraemia [Unknown]
